FAERS Safety Report 16011877 (Version 3)
Quarter: 2019Q4

REPORT INFORMATION
  Report Type: Spontaneous
  Country: FR (occurrence: FR)
  Receive Date: 20190227
  Receipt Date: 20191220
  Transmission Date: 20200122
  Serious: No
  Sender: FDA-Public Use
  Company Number: FR-ELI_LILLY_AND_COMPANY-FR201902008512

PATIENT
  Age: 18 Year
  Sex: Female

DRUGS (3)
  1. DULOXETINE HYDROCHLORIDE. [Suspect]
     Active Substance: DULOXETINE HYDROCHLORIDE
     Indication: BURNOUT SYNDROME
     Dosage: 60 MG, DAILY
     Route: 048
     Dates: start: 20190108, end: 20190208
  2. FLUOXETINE HYDROCHLORIDE. [Suspect]
     Active Substance: FLUOXETINE HYDROCHLORIDE
     Indication: BURNOUT SYNDROME
     Dosage: 20 MG, DAILY
     Route: 048
     Dates: start: 20190123, end: 20190124
  3. ZOPICLONE [Suspect]
     Active Substance: ZOPICLONE
     Indication: BURNOUT SYNDROME
     Dosage: 7.5 MG, DAILY
     Route: 048
     Dates: start: 20190116, end: 20190208

REACTIONS (2)
  - Blood creatine phosphokinase increased [Recovered/Resolved]
  - Transaminases increased [Recovered/Resolved]

NARRATIVE: CASE EVENT DATE: 2019
